FAERS Safety Report 7951367-9 (Version None)
Quarter: 2011Q4

REPORT INFORMATION
  Report Type: 
  Country: None (occurrence: None)
  Receive Date: 20111201
  Receipt Date: 20111122
  Transmission Date: 20120403
  Serious: Yes (Hospitalization)
  Sender: FDA-Public Use
  Company Number: US-BAYER-2010-004635

PATIENT
  Age: 43 Year
  Sex: Female
  Weight: 129 kg

DRUGS (4)
  1. YAZ [Suspect]
     Indication: ORAL CONTRACEPTION
     Dosage: UNK
     Dates: start: 20071201, end: 20090124
  2. TOPAMAX [Concomitant]
     Indication: MIGRAINE
     Dosage: 50 MG, QD
     Route: 048
     Dates: start: 19980101
  3. MICARDIS [Concomitant]
     Indication: HYPERTENSION
     Dosage: 80 MG, QD
     Route: 048
     Dates: start: 20070101
  4. YAZ [Suspect]
     Indication: MENSTRUATION IRREGULAR

REACTIONS (3)
  - EMOTIONAL DISTRESS [None]
  - PULMONARY EMBOLISM [None]
  - PAIN [None]
